FAERS Safety Report 4964385-X (Version None)
Quarter: 2006Q1

REPORT INFORMATION
  Report Type: 
  Country: None (occurrence: None)
  Receive Date: 20060331
  Receipt Date: 20060315
  Transmission Date: 20060701
  Serious: Yes (Hospitalization)
  Sender: FDA-Public Use
  Company Number: US200603003849

PATIENT
  Age: 25 Year
  Sex: Female

DRUGS (1)
  1. FLUOXETINE HYDROCHLORIDE [Suspect]
     Indication: DYSMENORRHOEA
     Dosage: UNK
     Route: 065

REACTIONS (3)
  - ABNORMAL BEHAVIOUR [None]
  - ALCOHOL USE [None]
  - TREMOR [None]
